FAERS Safety Report 14595238 (Version 2)
Quarter: 2018Q4

REPORT INFORMATION
  Report Type: Spontaneous
  Country: US (occurrence: US)
  Receive Date: 20180302
  Receipt Date: 20181218
  Transmission Date: 20190204
  Serious: Yes (Hospitalization)
  Sender: FDA-Public Use
  Company Number: US-AKORN PHARMACEUTICALS-2017AKN01374

PATIENT
  Age: 17 Year
  Sex: Male
  Weight: 105 kg

DRUGS (6)
  1. MYORISAN [Suspect]
     Active Substance: ISOTRETINOIN
     Indication: ACNE
     Dosage: UNK
     Dates: start: 20171013, end: 2017
  2. MYORISAN [Suspect]
     Active Substance: ISOTRETINOIN
     Indication: SCAR
  3. MYORISAN [Suspect]
     Active Substance: ISOTRETINOIN
     Indication: SCAR
  4. UNSPECIFIED TOPICAL STERIODS [Concomitant]
     Route: 061
  5. MYORISAN [Suspect]
     Active Substance: ISOTRETINOIN
     Indication: ACNE
     Dosage: 10 MG, 1X/DAY
     Route: 048
     Dates: start: 20180626, end: 20181010
  6. UNSPECIFIED TOPICAL EMOLLIENTS [Concomitant]

REACTIONS (4)
  - Dermatitis contact [Unknown]
  - Off label use [Recovered/Resolved]
  - Dermatitis atopic [Recovering/Resolving]
  - Eczema [Unknown]

NARRATIVE: CASE EVENT DATE: 2017
